FAERS Safety Report 8161398 (Version 2)
Quarter: 2013Q1

REPORT INFORMATION
  Report Type: Spontaneous
  Country: DE (occurrence: None)
  Receive Date: 20110916
  Receipt Date: 20121016
  Transmission Date: 20140127
  Serious: Yes (Congenital Anomaly, Other)
  Sender: FDA-Public Use
  Company Number: TPG2008A01334

PATIENT
  Sex: Female

DRUGS (3)
  1. ACTOS [Suspect]
     Indication: TYPE 2 DIABETES MELLITUS
     Route: 064
     Dates: start: 20070410, end: 20080326
  2. BLOPRESS (CANDESARTAN CILEXETIL) [Suspect]
     Indication: HYPERTENSION
     Route: 064
     Dates: start: 20071220, end: 20080326
  3. METFORMIN HYDROCHLORIDE [Concomitant]

REACTIONS (4)
  - Foetal growth restriction [None]
  - Hypoglycaemia neonatal [None]
  - Neonatal hypoxia [None]
  - Maternal drugs affecting foetus [None]
